FAERS Safety Report 16283255 (Version 2)
Quarter: 2020Q2

REPORT INFORMATION
  Report Type: Spontaneous
  Country: US (occurrence: US)
  Receive Date: 20190507
  Receipt Date: 20200401
  Transmission Date: 20200713
  Serious: Yes (Other)
  Sender: FDA-Public Use
  Company Number: US-ASTRAZENECA-2019SE63022

PATIENT
  Age: 67 Year
  Sex: Male
  Weight: 120.2 kg

DRUGS (54)
  1. PROTONIX [Suspect]
     Active Substance: PANTOPRAZOLE SODIUM
     Indication: GASTROOESOPHAGEAL REFLUX DISEASE
     Dosage: GENERIC
     Route: 065
     Dates: start: 20190829
  2. ENALAPRILL [Concomitant]
     Indication: HYPERTENSION
     Dates: start: 20080831
  3. GAVISCON [Concomitant]
     Active Substance: ALUMINUM HYDROXIDE\MAGNESIUM CARBONATE
     Dates: start: 1996
  4. AZITHROMYCIN ANHYDROUS. [Concomitant]
     Active Substance: AZITHROMYCIN ANHYDROUS
  5. PROMETHAZINE [Concomitant]
     Active Substance: PROMETHAZINE HYDROCHLORIDE
  6. CIPROFLOXACIN. [Concomitant]
     Active Substance: CIPROFLOXACIN
  7. NEOMYCIN. [Concomitant]
     Active Substance: NEOMYCIN
  8. IMIQUIMOD. [Concomitant]
     Active Substance: IMIQUIMOD
  9. GUAIFENESIN. [Concomitant]
     Active Substance: GUAIFENESIN
  10. PREVACID [Suspect]
     Active Substance: LANSOPRAZOLE
     Route: 065
  11. FENOFIBRATE. [Concomitant]
     Active Substance: FENOFIBRATE
     Indication: BLOOD CHOLESTEROL
     Dates: start: 20131124
  12. OXYCODONE [Concomitant]
     Active Substance: OXYCODONE
  13. ACETAMINOPHEN. [Concomitant]
     Active Substance: ACETAMINOPHEN
  14. TAMSULOSIN [Concomitant]
     Active Substance: TAMSULOSIN
  15. ROXICET [Concomitant]
     Active Substance: ACETAMINOPHEN\OXYCODONE HYDROCHLORIDE
  16. OMEPRAZOLE. [Suspect]
     Active Substance: OMEPRAZOLE
     Indication: GASTROOESOPHAGEAL REFLUX DISEASE
     Route: 065
     Dates: start: 20150818, end: 20160218
  17. DICLOFENAC [Concomitant]
     Active Substance: DICLOFENAC
  18. AZITHROMY [Concomitant]
  19. NEXIUM [Suspect]
     Active Substance: ESOMEPRAZOLE MAGNESIUM
     Indication: GASTROOESOPHAGEAL REFLUX DISEASE
     Route: 048
     Dates: start: 20010101, end: 2009
  20. NEXIUM 24HR [Suspect]
     Active Substance: ESOMEPRAZOLE MAGNESIUM
     Indication: GASTROOESOPHAGEAL REFLUX DISEASE
     Route: 048
     Dates: start: 20140301, end: 2018
  21. SIMVASTATIN. [Concomitant]
     Active Substance: SIMVASTATIN
     Indication: BLOOD CHOLESTEROL
     Dates: start: 20080810
  22. RANITIDINE. [Concomitant]
     Active Substance: RANITIDINE
     Dates: start: 2008
  23. TRICOR [Concomitant]
     Active Substance: FENOFIBRATE
  24. CIALIS [Concomitant]
     Active Substance: TADALAFIL
  25. LEVOFLOXACIN. [Concomitant]
     Active Substance: LEVOFLOXACIN
  26. JANUVIA [Concomitant]
     Active Substance: SITAGLIPTIN PHOSPHATE
  27. METRONIDAZOLE. [Concomitant]
     Active Substance: METRONIDAZOLE
  28. FISH OIL [Concomitant]
     Active Substance: FISH OIL
     Indication: SUPPLEMENTATION THERAPY
     Dates: start: 2005
  29. PROVENTIL [Concomitant]
     Active Substance: ALBUTEROL
  30. SIMVASTATIN. [Concomitant]
     Active Substance: SIMVASTATIN
  31. CARVEDILOL. [Concomitant]
     Active Substance: CARVEDILOL
  32. FENOFIBRATE. [Concomitant]
     Active Substance: FENOFIBRATE
  33. AMOXICILLIN. [Concomitant]
     Active Substance: AMOXICILLIN
  34. PLAVIX [Concomitant]
     Active Substance: CLOPIDOGREL BISULFATE
     Indication: HYPERTENSION
     Dates: start: 20080523
  35. LISINOPRIL. [Concomitant]
     Active Substance: LISINOPRIL
  36. ENALAPRIL MALEATE. [Concomitant]
     Active Substance: ENALAPRIL MALEATE
  37. FLUOROURACIL. [Concomitant]
     Active Substance: FLUOROURACIL
  38. VIAGRA [Concomitant]
     Active Substance: SILDENAFIL CITRATE
  39. FLUZONE [Concomitant]
     Active Substance: INFLUENZA A VIRUS A/CALIFORNIA/7/2009 X-179A (H1N1) ANTIGEN (FORMALDEHYDE INACTIVATED)\INFLUENZA A VIRUS A/VICTORIA/210/2009 X-187 (H3N2) ANTIGEN (FORMALDEHYDE INACTIVATED)\INFLUENZA B VIRUS B/BRISBANE/60/2008 ANTIGEN (FORMALDEHYDE INACTIVATED)
  40. CEPHALEXIN. [Concomitant]
     Active Substance: CEPHALEXIN
  41. TRULICITY [Concomitant]
     Active Substance: DULAGLUTIDE
     Indication: DIABETES MELLITUS
     Dates: start: 2015
  42. PEPTO-BISMOL [Concomitant]
     Active Substance: BISMUTH SUBSALICYLATE
     Dates: start: 1996
  43. PENICILLIN [Concomitant]
     Active Substance: PENICILLIN
  44. METFORMIN [Concomitant]
     Active Substance: METFORMIN HYDROCHLORIDE
  45. LEVAQUIN [Concomitant]
     Active Substance: LEVOFLOXACIN
  46. FLUOROURACIL. [Concomitant]
     Active Substance: FLUOROURACIL
  47. KETOCONAZOLE. [Concomitant]
     Active Substance: KETOCONAZOLE
  48. PREVACID 24 HR [Suspect]
     Active Substance: LANSOPRAZOLE
     Indication: GASTROOESOPHAGEAL REFLUX DISEASE
     Route: 065
     Dates: start: 200901, end: 201201
  49. METOCLOPRAMIDE. [Concomitant]
     Active Substance: METOCLOPRAMIDE
     Indication: DYSPEPSIA
     Dates: start: 2000
  50. METFORMIN [Concomitant]
     Active Substance: METFORMIN HYDROCHLORIDE
     Indication: DIABETES MELLITUS
     Dates: start: 20090515
  51. ASPIRIN. [Concomitant]
     Active Substance: ASPIRIN
     Indication: CARDIAC DISORDER
     Dates: start: 1996
  52. CHANTIX [Concomitant]
     Active Substance: VARENICLINE TARTRATE
  53. TOBRAMYCIN. [Concomitant]
     Active Substance: TOBRAMYCIN
  54. FENOFIBRATE. [Concomitant]
     Active Substance: FENOFIBRATE

REACTIONS (3)
  - Acute kidney injury [Unknown]
  - Gastrooesophageal reflux disease [Not Recovered/Not Resolved]
  - Chronic kidney disease [Not Recovered/Not Resolved]
